FAERS Safety Report 10144800 (Version 1)
Quarter: 2014Q2

REPORT INFORMATION
  Report Type: Spontaneous
  Country: US (occurrence: US)
  Receive Date: 20140430
  Receipt Date: 20140430
  Transmission Date: 20141212
  Serious: No
  Sender: FDA-Public Use
  Company Number: US-SA-2013SA103151

PATIENT
  Age: 52 Year
  Sex: Female

DRUGS (4)
  1. LOVENOX [Suspect]
     Indication: THROMBOSIS
     Dosage: DOSE - 120 MG/0.8 ML?THERAPY START DATE - ~ 01-OCT-2013
     Route: 065
     Dates: start: 201310
  2. WARFARIN SODIUM [Suspect]
     Route: 065
  3. ANTIHYPERTENSIVES [Suspect]
     Route: 065
  4. VITAMIN B12 [Suspect]
     Route: 065

REACTIONS (4)
  - Cough [Not Recovered/Not Resolved]
  - Dysgeusia [Not Recovered/Not Resolved]
  - Wrong drug administered [Unknown]
  - Inappropriate schedule of drug administration [Unknown]
